FAERS Safety Report 21932633 (Version 4)
Quarter: 2023Q1

REPORT INFORMATION
  Report Type: Spontaneous
  Country: BY (occurrence: BY)
  Receive Date: 20230131
  Receipt Date: 20230222
  Transmission Date: 20230417
  Serious: Yes (Death, Life-Threatening, Other)
  Sender: FDA-Public Use
  Company Number: BY-JNJFOC-20230148336

PATIENT
  Age: 90 Year
  Sex: Female
  Weight: 43 kg

DRUGS (17)
  1. BEDAQUILINE [Suspect]
     Active Substance: BEDAQUILINE
     Indication: Tuberculosis
     Route: 048
     Dates: start: 20220907, end: 20230105
  2. BEDAQUILINE [Suspect]
     Active Substance: BEDAQUILINE
     Route: 048
     Dates: start: 20230119, end: 20230125
  3. BEDAQUILINE [Suspect]
     Active Substance: BEDAQUILINE
     Route: 048
     Dates: start: 20230205
  4. PRETOMANID [Suspect]
     Active Substance: PRETOMANID
     Indication: Tuberculosis
     Route: 048
     Dates: start: 20220907, end: 20230105
  5. PRETOMANID [Suspect]
     Active Substance: PRETOMANID
     Route: 048
     Dates: start: 20230119, end: 20230125
  6. PRETOMANID [Suspect]
     Active Substance: PRETOMANID
     Route: 048
     Dates: start: 20230205
  7. LINEZOLID [Suspect]
     Active Substance: LINEZOLID
     Indication: Tuberculosis
     Route: 048
     Dates: start: 20220907, end: 20221125
  8. LINEZOLID [Suspect]
     Active Substance: LINEZOLID
     Route: 048
     Dates: start: 20221126, end: 20230105
  9. LINEZOLID [Suspect]
     Active Substance: LINEZOLID
     Route: 048
     Dates: start: 20230119, end: 20230125
  10. LINEZOLID [Suspect]
     Active Substance: LINEZOLID
     Route: 048
     Dates: start: 20230205
  11. MOXIFLOXACIN [Suspect]
     Active Substance: MOXIFLOXACIN
     Indication: Tuberculosis
     Route: 048
     Dates: start: 20220907, end: 20230105
  12. MOXIFLOXACIN [Suspect]
     Active Substance: MOXIFLOXACIN
     Route: 048
     Dates: start: 20230119, end: 20230125
  13. FRAGMIN [Suspect]
     Active Substance: DALTEPARIN SODIUM
     Indication: Product used for unknown indication
     Route: 058
     Dates: start: 20220911, end: 20221122
  14. PYRIDOXINE [Concomitant]
     Active Substance: PYRIDOXINE
     Indication: Prophylaxis
     Route: 048
     Dates: start: 20220906, end: 20230210
  15. METOPROLOL [Concomitant]
     Active Substance: METOPROLOL
     Indication: Sinus tachycardia
     Dosage: 0.025 PER OS
     Route: 048
     Dates: start: 20230203, end: 20230210
  16. ASPIRIN [Concomitant]
     Active Substance: ASPIRIN
     Indication: Myocardial ischaemia
     Dosage: 0.075 PER OS
     Route: 048
     Dates: start: 20230203, end: 20230210
  17. ATORVASTATIN [Concomitant]
     Active Substance: ATORVASTATIN
     Indication: Hypercholesterolaemia
     Dosage: 0.01 PER OS
     Route: 048
     Dates: start: 20230203, end: 20230210

REACTIONS (4)
  - Cardiac failure acute [Fatal]
  - Electrocardiogram QT prolonged [Recovered/Resolved]
  - Haematochezia [Unknown]
  - Gastrointestinal haemorrhage [Unknown]

NARRATIVE: CASE EVENT DATE: 20221122
